FAERS Safety Report 5447019-X (Version None)
Quarter: 2007Q3

REPORT INFORMATION
  Report Type: 
  Country: None (occurrence: None)
  Receive Date: 20070808
  Receipt Date: 20070329
  Transmission Date: 20080115
  Serious: Yes (Other)
  Sender: FDA-Public Use
  Company Number: SMFE-724QN8

PATIENT
  Sex: Female

DRUGS (1)
  1. AVAGARD [Suspect]
     Indication: INFECTION PROPHYLAXIS
     Dosage: 6 ML, AS NEEDED
     Dates: start: 20070301

REACTIONS (2)
  - RASH [None]
  - SKIN REACTION [None]
